FAERS Safety Report 6206536-5 (Version None)
Quarter: 2009Q2

REPORT INFORMATION
  Report Type: 
  Country: None (occurrence: None)
  Receive Date: 20090528
  Receipt Date: 20090518
  Transmission Date: 20091009
  Serious: Yes (Other)
  Sender: FDA-Public Use
  Company Number: US-ELI_LILLY_AND_COMPANY-US200902005744

PATIENT
  Sex: Male

DRUGS (6)
  1. CYMBALTA [Suspect]
     Indication: ANXIETY DISORDER
     Dosage: 90 MG, UNK
     Dates: start: 20080501, end: 20080901
  2. CYMBALTA [Suspect]
     Dosage: 60 MG, UNK
     Dates: start: 20080908
  3. CYMBALTA [Suspect]
     Dosage: 20 MG, UNK
     Dates: end: 20090213
  4. XANAX [Concomitant]
     Dosage: 0.25 MG, 2/D
  5. AMBIEN [Concomitant]
     Indication: INSOMNIA
     Dosage: 5 MG, DAILY (1/D)
     Dates: start: 20080811
  6. ATIVAN [Concomitant]
     Indication: ANXIETY
     Dosage: 0.5 MG, EACH EVENING
     Dates: start: 20081201

REACTIONS (3)
  - DRUG WITHDRAWAL SYNDROME [None]
  - SIMPLE PARTIAL SEIZURES [None]
  - TEMPORAL LOBE EPILEPSY [None]
